FAERS Safety Report 4421236-X (Version None)
Quarter: 2004Q3

REPORT INFORMATION
  Report Type: 
  Country: None (occurrence: None)
  Receive Date: 20040708
  Receipt Date: 20040211
  Transmission Date: 20050211
  Serious: No
  Sender: FDA-Public Use
  Company Number: US066734

PATIENT
  Age: 52 Year
  Sex: Male

DRUGS (1)
  1. KINERET [Suspect]
     Indication: POLYARTHRITIS
     Dosage: 100 MG, 1 IN 1 DAYS, SC
     Route: 058
     Dates: start: 20030201

REACTIONS (2)
  - APTYALISM [None]
  - TONGUE BLACK HAIRY [None]
